FAERS Safety Report 23350094 (Version 2)
Quarter: 2024Q4

REPORT INFORMATION
  Report Type: Spontaneous
  Country: US (occurrence: US)
  Receive Date: 20231229
  Receipt Date: 20241226
  Transmission Date: 20250115
  Serious: Yes (Hospitalization, Other)
  Sender: ACCORD
  Company Number: US-Accord-397955

PATIENT
  Age: 85 Year
  Sex: Male

DRUGS (1)
  1. DOCETAXEL [Suspect]
     Active Substance: DOCETAXEL
     Indication: Prostate cancer metastatic
     Dosage: DOSE: 3 DF
     Route: 042

REACTIONS (3)
  - Retinal artery occlusion [Recovering/Resolving]
  - Pupillary reflex impaired [Recovering/Resolving]
  - Optic ischaemic neuropathy [Recovering/Resolving]
